FAERS Safety Report 7043638-8 (Version None)
Quarter: 2010Q4

REPORT INFORMATION
  Report Type: 
  Country: None (occurrence: None)
  Receive Date: 20101013
  Receipt Date: 20101007
  Transmission Date: 20110411
  Serious: Yes (Hospitalization)
  Sender: FDA-Public Use
  Company Number: B0679114A

PATIENT
  Sex: Female
  Weight: 71 kg

DRUGS (3)
  1. ROSIGLITAZONE [Suspect]
     Indication: TYPE 2 DIABETES MELLITUS
     Route: 048
     Dates: start: 20031103, end: 20090512
  2. MINIDIAB [Suspect]
     Indication: TYPE 2 DIABETES MELLITUS
     Dosage: 2.5MG PER DAY
     Route: 048
     Dates: start: 20090513
  3. METFORMIN [Concomitant]
     Indication: TYPE 2 DIABETES MELLITUS
     Dosage: 1000MG TWICE PER DAY
     Route: 048
     Dates: start: 20021215

REACTIONS (2)
  - FALL [None]
  - HIP FRACTURE [None]
